FAERS Safety Report 9250679 (Version 1)
Quarter: 2013Q1

REPORT INFORMATION
  Report Type: Spontaneous
  Country: US (occurrence: None)
  Receive Date: 20130305
  Receipt Date: 20130305
  Transmission Date: 20140127
  Serious: Yes (Other)
  Sender: FDA-Public Use
  Company Number: 163-21880-12040383

PATIENT
  Age: 63 Year
  Sex: Male

DRUGS (1)
  1. REVLIMID (LENALIDOMIDE) [Suspect]
     Indication: PLASMA CELL MYELOMA
     Dosage: 15MG, D1-D14, PO
     Route: 048
     Dates: start: 20110609, end: 20110831

REACTIONS (3)
  - Deep vein thrombosis [None]
  - Headache [None]
  - Constipation [None]
